FAERS Safety Report 7108059-8 (Version None)
Quarter: 2010Q4

REPORT INFORMATION
  Report Type: 
  Country: None (occurrence: None)
  Receive Date: 20101115
  Receipt Date: 20101115
  Transmission Date: 20110411
  Serious: Yes (Hospitalization)
  Sender: FDA-Public Use
  Company Number: None

PATIENT
  Age: 21 Year
  Sex: Female
  Weight: 56.6996 kg

DRUGS (2)
  1. YASMIN [Suspect]
     Indication: ORAL CONTRACEPTION
     Dosage: 1 TAB DAILY PO EARLY 09
     Route: 048
     Dates: start: 20090101, end: 20091101
  2. MULTI-VITAMIN [Concomitant]

REACTIONS (2)
  - APPENDICECTOMY [None]
  - CHOLECYSTECTOMY [None]
